FAERS Safety Report 16770075 (Version 1)
Quarter: 2019Q3

REPORT INFORMATION
  Report Type: Spontaneous
  Country: US (occurrence: US)
  Receive Date: 20190904
  Receipt Date: 20190904
  Transmission Date: 20191005
  Serious: No
  Sender: FDA-Public Use
  Company Number: US-GLAXOSMITHKLINE-US2019AMR157988

PATIENT
  Age: 47 Year
  Sex: Female
  Weight: 90.7 kg

DRUGS (3)
  1. FARESTON [Suspect]
     Active Substance: TOREMIFENE CITRATE
     Indication: PRODUCT USED FOR UNKNOWN INDICATION
     Dosage: UNK
     Route: 065
     Dates: start: 201901
  2. PROZAC [Suspect]
     Active Substance: FLUOXETINE HYDROCHLORIDE
     Indication: PANIC DISORDER
     Dosage: UNK
     Route: 065
     Dates: start: 2019, end: 2019
  3. WELLBUTRIN [Suspect]
     Active Substance: BUPROPION HYDROCHLORIDE
     Indication: PANIC DISORDER
     Dosage: UNK
     Route: 065
     Dates: start: 2019

REACTIONS (6)
  - Anxiety [Unknown]
  - Disturbance in attention [Unknown]
  - Product use in unapproved indication [Unknown]
  - Thinking abnormal [Unknown]
  - Aphasia [Unknown]
  - Malaise [Unknown]

NARRATIVE: CASE EVENT DATE: 2019
